FAERS Safety Report 6124188-X (Version None)
Quarter: 2009Q1

REPORT INFORMATION
  Report Type: 
  Country: None (occurrence: None)
  Receive Date: 20090319
  Receipt Date: 20090304
  Transmission Date: 20090719
  Serious: No
  Sender: FDA-Public Use
  Company Number: US-JNJFOC-20090301618

PATIENT
  Age: 3 Decade
  Sex: Male

DRUGS (3)
  1. INVEGA [Suspect]
     Indication: DRUG USE FOR UNKNOWN INDICATION
     Route: 048
     Dates: start: 20080101, end: 20080301
  2. ZOLPIDEM [Concomitant]
     Route: 048
  3. CYMBALTA [Concomitant]
     Route: 048

REACTIONS (2)
  - MUSCLE TIGHTNESS [None]
  - TREMOR [None]
